FAERS Safety Report 18174172 (Version 1)
Quarter: 2020Q3

REPORT INFORMATION
  Report Type: Spontaneous
  Country: US (occurrence: US)
  Receive Date: 20200820
  Receipt Date: 20200820
  Transmission Date: 20201103
  Serious: No
  Sender: FDA-Public Use
  Company Number: None

PATIENT
  Age: 59 Year
  Sex: Female

DRUGS (1)
  1. CLEAN N FRESH INSTANT HAND SANITIZER [Suspect]
     Active Substance: ALCOHOL
     Indication: COVID-19 PROPHYLAXIS
     Route: 061
     Dates: start: 20200818, end: 20200818

REACTIONS (4)
  - Product odour abnormal [None]
  - Product formulation issue [None]
  - Dysgeusia [None]
  - Product measured potency issue [None]

NARRATIVE: CASE EVENT DATE: 20200818
